FAERS Safety Report 11629157 (Version 2)
Quarter: 2015Q4

REPORT INFORMATION
  Report Type: Report from Study
  Country: TR (occurrence: TR)
  Receive Date: 20151014
  Receipt Date: 20151202
  Transmission Date: 20160304
  Serious: Yes (Other)
  Sender: FDA-Public Use
  Company Number: TR-BAYER-2015-363033

PATIENT
  Age: 24 Year
  Sex: Female

DRUGS (1)
  1. BETAFERON [Suspect]
     Active Substance: INTERFERON BETA-1B
     Indication: MULTIPLE SCLEROSIS
     Dosage: UNK
     Route: 058
     Dates: start: 20110328

REACTIONS (8)
  - Gait disturbance [None]
  - Cardiac aneurysm [None]
  - Product use issue [None]
  - Multiple sclerosis [None]
  - Facial pain [None]
  - Cardiomyopathy [None]
  - Cardiac disorder [None]
  - Fall [None]
